FAERS Safety Report 19091693 (Version 1)
Quarter: 2021Q2

REPORT INFORMATION
  Report Type: Spontaneous
  Country: IL (occurrence: IL)
  Receive Date: 20210405
  Receipt Date: 20210405
  Transmission Date: 20210717
  Serious: Yes (Other)
  Sender: FDA-Public Use
  Company Number: IL-PFIZER INC-2021323207

PATIENT
  Age: 31 Year
  Sex: Female

DRUGS (23)
  1. ACAMOL [NIMESULIDE] [Concomitant]
     Dosage: UNK
  2. AVILAC [LACTULOSE] [Concomitant]
     Dosage: UNK
  3. LUSTRAL [Concomitant]
     Active Substance: SERTRALINE HYDROCHLORIDE
     Dosage: 50 MG
  4. HYDROCORTISONE PANPHARMA [Concomitant]
     Dosage: 100 MG
  5. VFEND [Suspect]
     Active Substance: VORICONAZOLE
     Dosage: 200 MG X2
     Dates: start: 20210218
  6. BONDORMIN [Concomitant]
     Active Substance: BROTIZOLAM
     Dosage: UNK
  7. TAZOPIP [Concomitant]
     Active Substance: PIPERACETAZINE\TAZOBACTAM
     Dosage: 4.5 MG
  8. HEXAKAPRON [Concomitant]
     Active Substance: TRANEXAMIC ACID
     Dosage: UNK
  9. PRAMIN [IMIPRAMINE HYDROCHLORIDE] [Concomitant]
     Active Substance: IMIPRAMINE HYDROCHLORIDE
     Dosage: UNK
  10. CIPRALEX [Concomitant]
     Active Substance: ESCITALOPRAM OXALATE
     Dosage: 10 MG
  11. AMIKACIN MEDOPHARM [Concomitant]
     Dosage: UNK
  12. ALLORIL [Concomitant]
     Active Substance: ALLOPURINOL
     Dosage: 300
  13. LORATRIM [Concomitant]
     Dosage: UNK
  14. CLONEX (CLOZAPINE) [Concomitant]
     Dosage: 0.5 MG
  15. LORIVAN [Concomitant]
     Active Substance: LORAZEPAM
     Dosage: UNK
  16. LOSEC [Concomitant]
     Active Substance: OMEPRAZOLE
     Dosage: 20 MG
  17. ZOFRAN [Concomitant]
     Active Substance: ONDANSETRON HYDROCHLORIDE
     Dosage: 2MG/ML
  18. DECAPEPTYL DEPOT [Concomitant]
     Dosage: 3.75 MG
  19. OPTALGIN [Concomitant]
     Active Substance: METAMIZOLE
     Dosage: UNK
  20. PROTHIAZINE [Concomitant]
     Dosage: 25 MG
  21. MYLOTARG [LEVOFLOXACIN] [Concomitant]
     Dosage: UNK
  22. VABEN [Concomitant]
     Active Substance: OXAZEPAM
     Dosage: UNK
  23. RECTOZORIN [BENZOCAINE;BISMUTH OXYCHLORIDE;MENTHOL;THYMOL IODIDE;ZINC [Concomitant]
     Dosage: UNK

REACTIONS (4)
  - Vision blurred [Unknown]
  - Blindness [Unknown]
  - Visual impairment [Unknown]
  - Eye pain [Unknown]
